FAERS Safety Report 5008575-9 (Version None)
Quarter: 2006Q2

REPORT INFORMATION
  Report Type: 
  Country: None (occurrence: None)
  Receive Date: 20060522
  Receipt Date: 20060522
  Transmission Date: 20061013
  Serious: Yes (Life-Threatening, Hospitalization)
  Sender: FDA-Public Use
  Company Number: None

PATIENT
  Age: 40 Year
  Sex: Female
  Weight: 136.0791 kg

DRUGS (1)
  1. RAPTIVA [Suspect]
     Indication: PSORIASIS
     Dosage: 125 MG WEEKLY SQ
     Route: 058
     Dates: start: 20050204, end: 20060519

REACTIONS (2)
  - PUSTULAR PSORIASIS [None]
  - TREATMENT NONCOMPLIANCE [None]
